FAERS Safety Report 4909891-9 (Version None)
Quarter: 2006Q1

REPORT INFORMATION
  Report Type: 
  Country: None (occurrence: None)
  Receive Date: 20060213
  Receipt Date: 20051228
  Transmission Date: 20060701
  Serious: Yes (Hospitalization)
  Sender: FDA-Public Use
  Company Number: FR-BRISTOL-MYERS SQUIBB COMPANY-13233614

PATIENT
  Age: 62 Year
  Sex: Female

DRUGS (2)
  1. ERBITUX [Suspect]
     Indication: COLORECTAL CANCER
     Route: 042
     Dates: start: 20051228, end: 20051228
  2. MOTILIUM [Concomitant]
     Indication: NAUSEA
     Route: 048

REACTIONS (4)
  - CONVULSION [None]
  - DRUG ADMINISTRATION ERROR [None]
  - EXTRAVASATION [None]
  - PAIN [None]
